FAERS Safety Report 17908640 (Version 2)
Quarter: 2020Q4

REPORT INFORMATION
  Report Type: Spontaneous
  Country: AU (occurrence: AU)
  Receive Date: 20200617
  Receipt Date: 20201203
  Transmission Date: 20210113
  Serious: Yes (Hospitalization, Other)
  Sender: FDA-Public Use
  Company Number: AU-PFIZER INC-2020233660

PATIENT
  Age: 70 Year
  Sex: Female

DRUGS (1)
  1. XELJANZ [Suspect]
     Active Substance: TOFACITINIB CITRATE
     Indication: RHEUMATOID ARTHRITIS
     Dosage: 5 MG, 2X/DAY

REACTIONS (6)
  - Post procedural complication [Unknown]
  - Pain in extremity [Unknown]
  - Gait disturbance [Unknown]
  - Malaise [Unknown]
  - Cerebrovascular accident [Not Recovered/Not Resolved]
  - Fatigue [Unknown]
